FAERS Safety Report 10164724 (Version 1)
Quarter: 2014Q2

REPORT INFORMATION
  Report Type: Spontaneous
  Country: US (occurrence: US)
  Receive Date: 20140510
  Receipt Date: 20140510
  Transmission Date: 20141212
  Serious: No
  Sender: FDA-Public Use
  Company Number: US-BRISTOL-MYERS SQUIBB COMPANY-20159372

PATIENT
  Age: 70 Year
  Sex: Female
  Weight: 96.14 kg

DRUGS (2)
  1. BYDUREON [Suspect]
     Indication: TYPE 2 DIABETES MELLITUS
     Route: 058
     Dates: start: 20140106
  2. METFORMIN HCL [Suspect]

REACTIONS (2)
  - Injection site swelling [Unknown]
  - Drug ineffective [Unknown]
